FAERS Safety Report 9200972 (Version 1)
Quarter: 2013Q2

REPORT INFORMATION
  Report Type: Spontaneous
  Country: CR (occurrence: CR)
  Receive Date: 20130401
  Receipt Date: 20130401
  Transmission Date: 20140414
  Serious: Yes (Hospitalization, Other)
  Sender: FDA-Public Use
  Company Number: CR-JNJFOC-20130311864

PATIENT
  Age: 58 Year
  Sex: Male

DRUGS (6)
  1. XARELTO [Suspect]
     Indication: ANGINA PECTORIS
     Route: 048
  2. XARELTO [Suspect]
     Indication: ACUTE CORONARY SYNDROME
     Route: 048
  3. XARELTO [Suspect]
     Indication: THYROID OPERATION
     Route: 048
  4. COPLAVIX [Interacting]
     Indication: ANGINA PECTORIS
     Route: 065
  5. COPLAVIX [Interacting]
     Indication: ACUTE CORONARY SYNDROME
     Route: 065
  6. PLAVIX [Interacting]
     Indication: PRODUCT USED FOR UNKNOWN INDICATION
     Route: 065

REACTIONS (6)
  - Post procedural haemorrhage [Recovered/Resolved]
  - Haematuria [Recovered/Resolved]
  - Obstructive airways disorder [Unknown]
  - Haematoma [Recovered/Resolved]
  - Off label use [Unknown]
  - Drug interaction [Unknown]
